FAERS Safety Report 9262391 (Version 1)
Quarter: 2013Q2

REPORT INFORMATION
  Report Type: Spontaneous
  Country: DE (occurrence: None)
  Receive Date: 20130425
  Receipt Date: 20130425
  Transmission Date: 20140414
  Serious: Yes (Other)
  Sender: FDA-Public Use
  Company Number: DSM-2013-00411

PATIENT
  Age: 41 Year
  Sex: Male

DRUGS (2)
  1. VOCADO [Suspect]
     Indication: HYPERTENSION
     Route: 048
     Dates: start: 2011, end: 20130403
  2. TILIDIN [Suspect]
     Dates: start: 20130327

REACTIONS (2)
  - Blood pressure decreased [None]
  - Fatigue [None]
